FAERS Safety Report 6273280-8 (Version None)
Quarter: 2009Q3

REPORT INFORMATION
  Report Type: 
  Country: None (occurrence: None)
  Receive Date: 20090720
  Receipt Date: 20090709
  Transmission Date: 20100115
  Serious: Yes (Hospitalization)
  Sender: FDA-Public Use
  Company Number: US-ROCHE-590892

PATIENT
  Sex: Female
  Weight: 116.6 kg

DRUGS (21)
  1. RIBAVIRIN [Suspect]
     Route: 048
     Dates: start: 20080814
  2. RIBAVIRIN [Suspect]
     Dosage: THERAPY PERMANENTLY DISCONTINUED.
     Route: 048
     Dates: start: 20080930, end: 20081008
  3. PEG-INTERFERON ALFA 2A (RO 25-8310) [Suspect]
     Route: 058
     Dates: start: 20080814
  4. PEG-INTERFERON ALFA 2A (RO 25-8310) [Suspect]
     Dosage: THERAPY PERMANENTLY DISCONTINUED.
     Route: 058
     Dates: start: 20080911, end: 20081008
  5. ACTOS [Suspect]
     Route: 048
     Dates: start: 20080429
  6. ACTOS [Suspect]
     Dosage: THERAPY PERMANENTLY DISCONTINUED.
     Route: 048
     Dates: end: 20081008
  7. SEROQUEL [Concomitant]
     Dates: start: 20070101
  8. ABILIFY [Concomitant]
     Dates: start: 20070101
  9. XANAX [Concomitant]
     Dates: start: 20070101
  10. METHADONE HCL [Concomitant]
     Dates: start: 20060101
  11. NEURONTIN [Concomitant]
     Dates: start: 20060101
  12. LASIX [Concomitant]
     Dates: start: 20060101, end: 20081007
  13. POTASSIUM CHLORIDE [Concomitant]
     Dates: start: 20060101, end: 20081007
  14. PREVACID [Concomitant]
     Dates: start: 20080101
  15. ZANTAC [Concomitant]
     Dates: start: 20060101
  16. LOTENSIN [Concomitant]
     Dates: start: 20070101, end: 20081007
  17. DYAZIDE [Concomitant]
     Dates: start: 20080626
  18. FERROUS SULFATE TAB [Concomitant]
     Dates: start: 20080630
  19. PROCHLORPERAZINE MALEATE [Concomitant]
     Dates: start: 20080908
  20. ADIPEX [Concomitant]
     Dates: start: 20080626
  21. ZOLOFT [Concomitant]
     Dates: start: 20080101

REACTIONS (7)
  - ABDOMINAL DISCOMFORT [None]
  - BURNING SENSATION [None]
  - FALL [None]
  - HEPATIC STEATOSIS [None]
  - HEPATORENAL SYNDROME [None]
  - PANCYTOPENIA [None]
  - PYREXIA [None]
